FAERS Safety Report 10788891 (Version 2)
Quarter: 2015Q1

REPORT INFORMATION
  Report Type: Spontaneous
  Country: IT (occurrence: IT)
  Receive Date: 20150212
  Receipt Date: 20150218
  Transmission Date: 20150721
  Serious: Yes (Hospitalization)
  Sender: FDA-Public Use
  Company Number: IT-TEVA-539118ISR

PATIENT
  Age: 88 Year
  Sex: Male

DRUGS (2)
  1. FENTANYL. [Suspect]
     Active Substance: FENTANYL
     Indication: MYALGIA
     Dosage: 1 DF CYCLICAL
     Route: 062
     Dates: start: 20150116, end: 20150201
  2. CONTRAMAL - 100 MG/ML GOCCE ORALI SOLUZIONE - GRUNENTHAL ITALIA S.R.L. [Suspect]
     Active Substance: TRAMADOL HYDROCHLORIDE
     Indication: MYALGIA
     Dosage: ORAL DROPS, SOLUTION. 1 DF DAILY
     Route: 048
     Dates: start: 20150116, end: 20150201

REACTIONS (4)
  - Bradykinesia [Recovering/Resolving]
  - Vomiting [Recovering/Resolving]
  - Sopor [Recovering/Resolving]
  - Bradyphrenia [Recovering/Resolving]

NARRATIVE: CASE EVENT DATE: 20150201
